FAERS Safety Report 11124777 (Version 1)
Quarter: 2015Q2

REPORT INFORMATION
  Report Type: Report from Study
  Country: KR (occurrence: KR)
  Receive Date: 20150520
  Receipt Date: 20150520
  Transmission Date: 20150821
  Serious: Yes (Hospitalization)
  Sender: FDA-Public Use
  Company Number: KR-AMGEN-KORCT2015048938

PATIENT
  Age: 58 Year
  Sex: Female
  Weight: 54.4 kg

DRUGS (50)
  1. FILGRASTIM [Concomitant]
     Active Substance: FILGRASTIM
     Dosage: 150 MUG, UNK
     Route: 058
     Dates: start: 20150416, end: 20150416
  2. DOXORUBICIN [Concomitant]
     Active Substance: DOXORUBICIN
     Dosage: 75 MG, UNK
     Route: 042
     Dates: start: 20150319, end: 20150319
  3. DOXORUBICIN [Concomitant]
     Active Substance: DOXORUBICIN
     Dosage: 75 MG, UNK
     Route: 042
     Dates: start: 20150409, end: 20150409
  4. PALONOSETRON [Concomitant]
     Active Substance: PALONOSETRON
     Dosage: 0.25 MG, UNK
     Route: 042
     Dates: start: 20150319, end: 20150319
  5. APREPITANT. [Concomitant]
     Active Substance: APREPITANT
     Dosage: 80 MG, UNK
     Route: 048
     Dates: start: 20150320, end: 20150321
  6. TOBRAMYCIN. [Concomitant]
     Active Substance: TOBRAMYCIN
     Dosage: 200 MG, UNK
     Route: 042
     Dates: start: 20150326, end: 20150327
  7. MEGASTROL [Concomitant]
     Dosage: 200 ML, UNK
     Route: 048
     Dates: start: 20150416, end: 20150418
  8. DOXORUBICIN [Concomitant]
     Active Substance: DOXORUBICIN
     Dosage: 75 MG, UNK
     Route: 042
     Dates: start: 20150430, end: 20150430
  9. CYCLOPHOSPHAMIDE. [Concomitant]
     Active Substance: CYCLOPHOSPHAMIDE
     Dosage: 750 MG, UNK
     Route: 042
     Dates: start: 20150319, end: 20150319
  10. CYCLOPHOSPHAMIDE. [Concomitant]
     Active Substance: CYCLOPHOSPHAMIDE
     Dosage: 750 MG, UNK
     Route: 042
     Dates: start: 20150430, end: 20150430
  11. DEXAMETHASONE. [Concomitant]
     Active Substance: DEXAMETHASONE
     Dosage: 10 MG, UNK
     Route: 042
     Dates: start: 20150409, end: 20150409
  12. PALONOSETRON [Concomitant]
     Active Substance: PALONOSETRON
     Dosage: 0.25 MG, UNK
     Route: 042
     Dates: start: 20150409, end: 20150409
  13. APREPITANT. [Concomitant]
     Active Substance: APREPITANT
     Dosage: 125 MG, UNK
     Route: 048
     Dates: start: 20150319, end: 20150319
  14. RANITIDINE [Concomitant]
     Active Substance: RANITIDINE\RANITIDINE HYDROCHLORIDE
     Dosage: 300 MG, UNK
     Route: 048
     Dates: start: 20150319, end: 20150321
  15. RANITIDINE [Concomitant]
     Active Substance: RANITIDINE\RANITIDINE HYDROCHLORIDE
     Dosage: 300 MG, UNK
     Route: 048
     Dates: start: 20150409, end: 20150411
  16. VITAMEDIN                          /00176001/ [Concomitant]
     Dosage: 50 MG, UNK
     Route: 048
     Dates: start: 20150326, end: 20150327
  17. VITAMEDIN                          /00176001/ [Concomitant]
     Dosage: 50 MG, UNK
     Route: 048
     Dates: start: 20150416, end: 20150418
  18. DOCETAXEL. [Concomitant]
     Active Substance: DOCETAXEL
     Dosage: 112 MG, UNK
     Route: 042
     Dates: start: 20150319, end: 20150319
  19. DOCETAXEL. [Concomitant]
     Active Substance: DOCETAXEL
     Dosage: 112 MG, UNK
     Route: 042
     Dates: start: 20150409, end: 20150409
  20. DEXAMETHASONE. [Concomitant]
     Active Substance: DEXAMETHASONE
     Dosage: 10 MG, UNK
     Route: 042
     Dates: start: 20150319, end: 20150319
  21. DEXAMETHASONE. [Concomitant]
     Active Substance: DEXAMETHASONE
     Dosage: 3 MG, UNK
     Route: 048
     Dates: start: 20150410, end: 20150411
  22. DEXRAZOXANE. [Concomitant]
     Active Substance: DEXRAZOXANE
     Dosage: 750 MG, UNK
     Route: 042
     Dates: start: 20150409, end: 20150409
  23. RISENEXPLUS [Concomitant]
     Dosage: 35 MG, UNK
     Route: 048
     Dates: start: 20150312
  24. APREPITANT. [Concomitant]
     Active Substance: APREPITANT
     Dosage: 80 MG, UNK
     Route: 048
     Dates: start: 20150410, end: 20150411
  25. CEFOBACTAM [Concomitant]
     Dosage: 2 G, UNK
     Route: 042
     Dates: start: 20150326, end: 20150327
  26. TRESTAN                            /00056201/ [Concomitant]
     Dosage: 2CAP., UNK
     Route: 048
     Dates: start: 20150326, end: 20150327
  27. LOPERAMIDE [Concomitant]
     Active Substance: LOPERAMIDE
     Dosage: 6 MG, UNK
     Route: 048
     Dates: start: 20150422, end: 20150429
  28. CEFOBACTAM [Concomitant]
     Dosage: 2 G, UNK
     Route: 042
     Dates: start: 20150416, end: 20150416
  29. COUGH SYRUP [Concomitant]
     Active Substance: DEXTROMETHORPHAN HYDROBROMIDE\GUAIFENESIN
     Dosage: 60 ML, UNK
     Route: 048
     Dates: start: 20150422, end: 20150429
  30. PEGFILGRASTIM [Suspect]
     Active Substance: PEGFILGRASTIM
     Indication: FEBRILE NEUTROPENIA
     Dosage: 6 MG, 1X/3WEEKS
     Route: 058
     Dates: start: 20150320
  31. PEGFILGRASTIM [Suspect]
     Active Substance: PEGFILGRASTIM
     Dosage: 6 MG, 1X/3WEEKS
     Route: 058
     Dates: start: 20150410
  32. DEXRAZOXANE. [Concomitant]
     Active Substance: DEXRAZOXANE
     Dosage: 750 MG, UNK
     Route: 042
     Dates: start: 20150319, end: 20150319
  33. PHAZYME                            /00164001/ [Concomitant]
     Dosage: 95 MG, UNK
     Route: 048
     Dates: start: 20150327, end: 20150331
  34. FILGRASTIM [Concomitant]
     Active Substance: FILGRASTIM
     Dosage: 150 MUG, UNK
     Route: 058
     Dates: start: 20150326, end: 20150327
  35. CYCLOPHOSPHAMIDE. [Concomitant]
     Active Substance: CYCLOPHOSPHAMIDE
     Dosage: 750 MG, UNK
     Route: 042
     Dates: start: 20150409, end: 20150409
  36. DEXAMETHASONE. [Concomitant]
     Active Substance: DEXAMETHASONE
     Dosage: 3 MG, UNK
     Route: 048
     Dates: start: 20150320, end: 20150321
  37. PENNEL                             /01570505/ [Concomitant]
     Dosage: 3 CAP, UNK
     Route: 048
     Dates: start: 20150319, end: 20150326
  38. APREPITANT. [Concomitant]
     Active Substance: APREPITANT
     Dosage: 125 MG, UNK
     Route: 048
     Dates: start: 20150409, end: 20150409
  39. METOCLOPRAMIDE HCL [Concomitant]
     Active Substance: METOCLOPRAMIDE HYDROCHLORIDE
     Dosage: 30 MG, UNK
     Route: 048
     Dates: start: 20150409, end: 20150411
  40. TOBRAMYCIN. [Concomitant]
     Active Substance: TOBRAMYCIN
     Dosage: 200 MG, UNK
     Route: 042
     Dates: start: 20150416, end: 20150416
  41. DARBEPOETIN ALFA [Concomitant]
     Active Substance: DARBEPOETIN ALFA
     Dosage: 357 MUG, UNK
     Route: 058
     Dates: start: 20150417, end: 20150417
  42. DOCETAXEL. [Concomitant]
     Active Substance: DOCETAXEL
     Dosage: 112 MG, UNK
     Route: 042
     Dates: start: 20150430, end: 20150430
  43. DIMENHYDRINATE. [Concomitant]
     Active Substance: DIMENHYDRINATE
     Dosage: 150 MG, UNK
     Route: 048
     Dates: start: 20150319, end: 20150321
  44. METOCLOPRAMIDE HCL [Concomitant]
     Active Substance: METOCLOPRAMIDE HYDROCHLORIDE
     Dosage: 30 MG, UNK
     Route: 048
     Dates: start: 20150319, end: 20150321
  45. LEGALON [Concomitant]
     Active Substance: MILK THISTLE
     Dosage: 420 MG, UNK
     Route: 048
     Dates: start: 20150319, end: 20150326
  46. DIMENHYDRINATE. [Concomitant]
     Active Substance: DIMENHYDRINATE
     Dosage: 150 MG, UNK
     Route: 048
     Dates: start: 20150409, end: 20150411
  47. MEGASTROL [Concomitant]
     Dosage: 800 MG, UNK
     Route: 048
     Dates: start: 20150326, end: 20150327
  48. TRESTAN                            /00056201/ [Concomitant]
     Dosage: 2CAP., UNK
     Route: 048
     Dates: start: 20150416, end: 20150418
  49. SEPTRIN [Concomitant]
     Active Substance: SULFAMETHOXAZOLE\TRIMETHOPRIM
     Dosage: 800 MG, UNK
     Route: 048
     Dates: start: 20150326, end: 20150328
  50. DICLOFENAC [Concomitant]
     Active Substance: DICLOFENAC
     Dosage: 75 MG, UNK
     Route: 030
     Dates: start: 20150417, end: 20150417

REACTIONS (1)
  - Febrile neutropenia [Recovered/Resolved]

NARRATIVE: CASE EVENT DATE: 20150504
